FAERS Safety Report 5633975-3 (Version None)
Quarter: 2008Q1

REPORT INFORMATION
  Report Type: 
  Country: None (occurrence: None)
  Receive Date: 20080131
  Receipt Date: 20071127
  Transmission Date: 20080703
  Serious: No
  Sender: FDA-Public Use
  Company Number: PHEH2007US15247

PATIENT
  Sex: Male

DRUGS (2)
  1. TEKTURNA [Suspect]
     Dosage: 150 MG
  2. BISOPROLOL W/HYDROCHLOROTHIAZIDE(BISOPROLOL, HYDROCHLOROTHIAZIDE) [Suspect]
     Dosage: 300 MG

REACTIONS (3)
  - DRUG INEFFECTIVE [None]
  - HEART RATE INCREASED [None]
  - POLLAKIURIA [None]
